FAERS Safety Report 6216441-6 (Version None)
Quarter: 2009Q2

REPORT INFORMATION
  Report Type: 
  Country: None (occurrence: None)
  Receive Date: 20090605
  Receipt Date: 20090526
  Transmission Date: 20091009
  Serious: Yes (Hospitalization)
  Sender: FDA-Public Use
  Company Number: US-ROCHE-636269

PATIENT
  Sex: Male

DRUGS (8)
  1. MYCOPHENOLATE MOFETIL [Suspect]
     Indication: DRUG USE FOR UNKNOWN INDICATION
     Route: 048
     Dates: start: 20080716
  2. ENTECAVIR [Suspect]
     Indication: HEPATITIS B
     Route: 048
     Dates: start: 20080619
  3. TACROLIMUS [Suspect]
     Indication: DRUG USE FOR UNKNOWN INDICATION
     Route: 048
     Dates: start: 20080826
  4. CALCIUM CARBONATE [Concomitant]
     Dates: start: 20080717
  5. BACTRIM [Concomitant]
     Dates: start: 20080630
  6. ESCITALOPRAM [Concomitant]
     Dates: start: 20080924
  7. HEPATITIS B IMMUNOGLOBULINS [Concomitant]
     Dates: start: 20080731
  8. INSULIN ASPART [Concomitant]
     Dates: start: 20080630

REACTIONS (2)
  - FLANK PAIN [None]
  - URINARY TRACT INFECTION [None]
